FAERS Safety Report 24371927 (Version 1)
Quarter: 2024Q3

REPORT INFORMATION
  Report Type: Spontaneous
  Country: US (occurrence: None)
  Receive Date: 20240926
  Receipt Date: 20240926
  Transmission Date: 20241017
  Serious: Yes (Other)
  Sender: Public
  Company Number: None

PATIENT
  Age: 65 Year
  Sex: 0
  Weight: 99 kg

DRUGS (14)
  1. REPATHA [Suspect]
     Active Substance: EVOLOCUMAB
     Indication: Blood cholesterol increased
     Dosage: OTHER QUANTITY : 1 INJECTION(S);?OTHER FREQUENCY : EVERY 2 WEEKS;?
     Route: 030
  2. levoxothyroxin [Concomitant]
  3. LISINOPRIL [Concomitant]
     Active Substance: LISINOPRIL
  4. JANUVIA [Concomitant]
     Active Substance: SITAGLIPTIN PHOSPHATE
  5. BERBERINE [Concomitant]
  6. cholest-t [Concomitant]
  7. hiphenolic [Concomitant]
  8. CURCUMIN [Concomitant]
  9. FISH OIL [Concomitant]
     Active Substance: FISH OIL
  10. probiotic [Concomitant]
  11. VITAMINS [Concomitant]
     Active Substance: VITAMINS
  12. iron supplement [Concomitant]
  13. DIETARY SUPPLEMENT\HERBALS\MILK THISTLE [Concomitant]
     Active Substance: MILK THISTLE
  14. digestive enzymes [Concomitant]

REACTIONS (3)
  - Glycosylated haemoglobin increased [None]
  - Injection site cyst [None]
  - Mass [None]

NARRATIVE: CASE EVENT DATE: 20240920
